FAERS Safety Report 6613472-9 (Version None)
Quarter: 2010Q1

REPORT INFORMATION
  Report Type: 
  Country: None (occurrence: None)
  Receive Date: 20100304
  Receipt Date: 20100115
  Transmission Date: 20100710
  Serious: Yes (Hospitalization)
  Sender: FDA-Public Use
  Company Number: FR-JNJFOC-20090908056

PATIENT
  Age: 58 Year
  Sex: Female

DRUGS (12)
  1. LEVOFLOXACIN [Suspect]
     Indication: DRUG USE FOR UNKNOWN INDICATION
     Route: 048
  2. MIRTAZAPINE [Interacting]
     Indication: INSOMNIA
     Route: 048
  3. MIRTAZAPINE [Interacting]
     Route: 048
  4. MIRTAZAPINE [Interacting]
     Indication: DECREASED APPETITE
     Route: 048
  5. MIRTAZAPINE [Interacting]
     Route: 048
  6. METOCLOPRAMIDE [Interacting]
     Indication: DRUG USE FOR UNKNOWN INDICATION
     Route: 048
  7. ENOXAPARIN SODIUM [Concomitant]
     Route: 058
  8. NYSTATIN [Concomitant]
     Route: 048
  9. PANTOPRAZOLE [Concomitant]
     Route: 048
  10. ACETAMINOPHEN [Concomitant]
     Indication: PAIN
     Route: 048
  11. ACETAMINOPHEN [Concomitant]
     Indication: PYREXIA
     Route: 048
  12. CEFEPIME [Concomitant]
     Route: 042

REACTIONS (11)
  - BLOOD CALCIUM DECREASED [None]
  - BLOOD CHLORIDE DECREASED [None]
  - BLOOD SODIUM DECREASED [None]
  - DRUG INTERACTION [None]
  - GRAND MAL CONVULSION [None]
  - HAEMATOCRIT DECREASED [None]
  - HAEMOGLOBIN DECREASED [None]
  - KLEBSIELLA BACTERAEMIA [None]
  - NEUTROPHIL PERCENTAGE INCREASED [None]
  - PLATELET COUNT INCREASED [None]
  - RASH [None]
